FAERS Safety Report 9499050 (Version 2)
Quarter: 2013Q3

REPORT INFORMATION
  Report Type: Spontaneous
  Country: AU (occurrence: AU)
  Receive Date: 20130904
  Receipt Date: 20130904
  Transmission Date: 20140515
  Serious: Yes (Other)
  Sender: FDA-Public Use
  Company Number: AU-ALLERGAN-1312865US

PATIENT
  Sex: Female

DRUGS (4)
  1. BOTOX [Suspect]
     Indication: PRODUCT USED FOR UNKNOWN INDICATION
     Dosage: 24 UNITS, SINGLE
     Route: 030
     Dates: start: 20130205, end: 20130205
  2. BOTOX [Suspect]
     Indication: SKIN WRINKLING
     Dosage: 16 UNITS, SINGLE
     Route: 030
     Dates: start: 20130205, end: 20130205
  3. BOTOX [Suspect]
     Dosage: 4 UNITS, SINGLE
     Route: 030
     Dates: start: 20130205, end: 20130205
  4. JUVEDERM VOLUMA [Suspect]
     Indication: SKIN WRINKLING

REACTIONS (2)
  - Guillain-Barre syndrome [Recovering/Resolving]
  - Off label use [Unknown]
